FAERS Safety Report 8586060-5 (Version None)
Quarter: 2012Q3

REPORT INFORMATION
  Report Type: 
  Country: None (occurrence: None)
  Receive Date: 20120810
  Receipt Date: 20120808
  Transmission Date: 20120928
  Serious: Yes (Other)
  Sender: FDA-Public Use
  Company Number: GB-ROCHE-1083717

PATIENT
  Sex: Female
  Weight: 73 kg

DRUGS (3)
  1. GEMCITABINE HYDROCHLORIDE [Concomitant]
     Indication: OVARIAN CANCER
     Route: 042
     Dates: start: 20111214, end: 20120327
  2. AVASTIN [Suspect]
     Indication: OVARIAN CANCER
     Dosage: 2 X 16 ML VIAL AND 3 X 4 ML VIAL
     Route: 042
     Dates: start: 20120327
  3. CARBOPLATIN [Concomitant]
     Indication: OVARIAN CANCER
     Route: 042
     Dates: start: 20111214, end: 20120327

REACTIONS (4)
  - PROTEINURIA [None]
  - HYPERTENSION [None]
  - OEDEMA [None]
  - HAEMATURIA [None]
